FAERS Safety Report 10418283 (Version 2)
Quarter: 2014Q4

REPORT INFORMATION
  Report Type: Spontaneous
  Country: CA (occurrence: CA)
  Receive Date: 20140829
  Receipt Date: 20141014
  Transmission Date: 20150528
  Serious: Yes (Hospitalization, Other)
  Sender: FDA-Public Use
  Company Number: CA-PFIZER INC-2014235620

PATIENT
  Sex: Female

DRUGS (4)
  1. AZARGA [Interacting]
     Active Substance: BRINZOLAMIDE\TIMOLOL MALEATE
     Dosage: UNK
     Route: 047
  2. PMS-COLCHICINE [Interacting]
     Active Substance: COLCHICINE
     Indication: PROPHYLAXIS
     Dosage: UNK
  3. XALATAN [Interacting]
     Active Substance: LATANOPROST
     Dosage: 1 GTT IN EACH EYE, 1X/DAY AT BEDTIME
     Route: 047
     Dates: start: 201402, end: 20140824
  4. XALATAN [Suspect]
     Active Substance: LATANOPROST
     Indication: GLAUCOMA
     Dosage: 1 GTT IN EACH EYE, 1X/DAY AT BEDTIME
     Route: 047
     Dates: start: 2013

REACTIONS (9)
  - Pericarditis [Recovered/Resolved]
  - Drug interaction [Unknown]
  - Joint swelling [Recovered/Resolved]
  - Pleural effusion [Recovered/Resolved]
  - Tachycardia [Recovered/Resolved]
  - Muscular weakness [Recovering/Resolving]
  - Fatigue [Recovering/Resolving]
  - Quality of life decreased [Recovering/Resolving]
  - Intraocular pressure increased [None]

NARRATIVE: CASE EVENT DATE: 2013
